FAERS Safety Report 9553569 (Version 1)
Quarter: 2013Q3

REPORT INFORMATION
  Report Type: Spontaneous
  Country: BE (occurrence: None)
  Receive Date: 20130916
  Receipt Date: 20130916
  Transmission Date: 20140515
  Serious: Yes (Other)
  Sender: FDA-Public Use
  Company Number: JPI-P-019677

PATIENT
  Age: 19 Year
  Sex: Female

DRUGS (3)
  1. XYREM (500 MILLIGRAM/ MILLILITERS, SOLUTION) (SODIUM OXYBATE) [Suspect]
     Indication: CATAPLEXY
     Dosage: 4.5 GM (2.25 GM, 2 IN 1 D), ORAL
     Route: 048
     Dates: start: 20120103
  2. CONCERTA [Suspect]
     Indication: CATAPLEXY
     Route: 048
     Dates: start: 20111007, end: 201203
  3. RITALIN (METHYLPHENIDATE) [Concomitant]

REACTIONS (5)
  - Abnormal loss of weight [None]
  - Nausea [None]
  - Agitation [None]
  - Irritability [None]
  - Condition aggravated [None]
